FAERS Safety Report 5498038-9 (Version None)
Quarter: 2007Q4

REPORT INFORMATION
  Report Type: 
  Country: None (occurrence: None)
  Receive Date: 20071018
  Receipt Date: 20070507
  Transmission Date: 20080405
  Serious: Yes (Other)
  Sender: FDA-Public Use
  Company Number: 2005132299

PATIENT
  Age: 39 Year
  Sex: Male

DRUGS (3)
  1. NEURONTIN [Suspect]
     Indication: BACK PAIN
     Dosage: 600 MG (200 MG, 3 IN 1 D)
     Dates: start: 20020124
  2. VANCOMYCIN [Concomitant]
  3. DIFLUCA                       (FLUCONAZOLE) [Concomitant]

REACTIONS (2)
  - DRUG INEFFECTIVE [None]
  - SUICIDE ATTEMPT [None]
